FAERS Safety Report 10512136 (Version 1)
Quarter: 2014Q3

REPORT INFORMATION
  Report Type: Spontaneous
  Country: US (occurrence: None)
  Receive Date: 20140926
  Receipt Date: 20140926
  Transmission Date: 20150326
  Serious: No
  Sender: FDA-Public Use
  Company Number: 1000068604

PATIENT
  Age: 68 Year
  Sex: Female

DRUGS (4)
  1. LINZESS [Suspect]
     Active Substance: LINACLOTIDE
     Indication: CONSTIPATION
     Route: 048
     Dates: start: 20140628, end: 20140629
  2. CLORAZEPATE(CLORAZEPATE DIPOTASSIUM) [Concomitant]
  3. NASAL SPARY (NOS) [Concomitant]
  4. IRON [Concomitant]
     Active Substance: IRON

REACTIONS (2)
  - Nausea [None]
  - Abdominal pain upper [None]

NARRATIVE: CASE EVENT DATE: 20140629
